FAERS Safety Report 9167872 (Version 2)
Quarter: 2013Q1

REPORT INFORMATION
  Report Type: Spontaneous
  Country: GB (occurrence: None)
  Receive Date: 20130305
  Receipt Date: 20130314
  Transmission Date: 20140127
  Serious: Yes (Other)
  Sender: FDA-Public Use
  Company Number: AUR-APL-2013-01768

PATIENT
  Age: 20 Year
  Sex: Female

DRUGS (1)
  1. SERTRALINE [Suspect]
     Indication: DEPRESSION
     Dosage: (100 MG, 1 IN 1 D), ORAL
     Route: 048

REACTIONS (3)
  - Pregnancy [None]
  - Maternal exposure during pregnancy [None]
  - Abortion spontaneous [None]
